FAERS Safety Report 8884557 (Version 1)
Quarter: 2012Q4

REPORT INFORMATION
  Report Type: 
  Country: FR (occurrence: FR)
  Receive Date: 20121104
  Receipt Date: 20121104
  Transmission Date: 20130627
  Serious: Yes (Hospitalization, Other)
  Sender: FDA-Public Use
  Company Number: FR-BRISTOL-MYERS SQUIBB COMPANY-17073560

PATIENT
  Age: 79 Year
  Sex: Female

DRUGS (1)
  1. HYDREA CAPS 500 MG [Suspect]
     Indication: ESSENTIAL THROMBOCYTHAEMIA
     Route: 048
     Dates: start: 200504, end: 20120926

REACTIONS (3)
  - Angiodermatitis [Recovering/Resolving]
  - Haemoptysis [Unknown]
  - Superinfection [Unknown]
